FAERS Safety Report 24233951 (Version 1)
Quarter: 2024Q3

REPORT INFORMATION
  Report Type: Spontaneous
  Country: US (occurrence: US)
  Receive Date: 20240821
  Receipt Date: 20240821
  Transmission Date: 20241016
  Serious: No
  Sender: BIOMARIN
  Company Number: US-SA-SAC20240812000874

PATIENT

DRUGS (2)
  1. LARONIDASE [Suspect]
     Active Substance: LARONIDASE
     Indication: Mucopolysaccharidosis I
     Dosage: 40.6 (UNITS NOT KNOWN), QOW
     Route: 042
     Dates: start: 202002
  2. LARONIDASE [Suspect]
     Active Substance: LARONIDASE
     Dosage: 40.6 (UNITS NOT KNOWN), QOW
     Route: 042
     Dates: start: 202405

REACTIONS (3)
  - Spinal osteoarthritis [Unknown]
  - Nerve compression [Unknown]
  - Inappropriate schedule of product administration [Unknown]

NARRATIVE: CASE EVENT DATE: 20200201
